FAERS Safety Report 21793680 (Version 2)
Quarter: 2023Q1

REPORT INFORMATION
  Report Type: Report from Study
  Country: CA (occurrence: CA)
  Receive Date: 20221229
  Receipt Date: 20230206
  Transmission Date: 20230417
  Serious: Yes (Death, Hospitalization, Other)
  Sender: FDA-Public Use
  Company Number: CA-VER-202200656

PATIENT
  Age: 73 Year
  Sex: Male

DRUGS (3)
  1. TRIPTORELIN PAMOATE [Suspect]
     Active Substance: TRIPTORELIN PAMOATE
     Indication: Prostate cancer
     Dosage: 22.5 MILLIGRAM, ONCE / 6 MONTHS
     Route: 030
     Dates: start: 20211206, end: 20211206
  2. TRIPTORELIN PAMOATE [Suspect]
     Active Substance: TRIPTORELIN PAMOATE
     Indication: Prostate cancer
     Dosage: 22.5 MILLIGRAM, ONCE / 6 MONTHS
     Route: 030
     Dates: start: 20220607, end: 20220607
  3. TRIPTORELIN PAMOATE [Suspect]
     Active Substance: TRIPTORELIN PAMOATE
     Indication: Prostate cancer
     Dosage: 22.5 MILLIGRAM, ONCE / 6 MONTHS
     Route: 030
     Dates: start: 20221206, end: 20221206

REACTIONS (9)
  - Constipation [Unknown]
  - COVID-19 [Unknown]
  - Catheter placement [Unknown]
  - Hypersomnia [Unknown]
  - Paralysis [Unknown]
  - Death [Fatal]
  - Bone cancer metastatic [Unknown]
  - Spinal cord compression [Unknown]
  - Metastases to spine [Unknown]

NARRATIVE: CASE EVENT DATE: 20221223
